FAERS Safety Report 11861961 (Version 1)
Quarter: 2015Q4

REPORT INFORMATION
  Report Type: Not Available
  Country: US (occurrence: US)
  Receive Date: 20151222
  Receipt Date: 20151222
  Transmission Date: 20160305
  Serious: Yes (Other)
  Sender: FDA-Public Use
  Company Number: US-HISAMITSU-2015-US-000784

PATIENT
  Age: 43 Year
  Sex: Female

DRUGS (3)
  1. ZOLOFT [Concomitant]
     Active Substance: SERTRALINE HYDROCHLORIDE
  2. SALONPAS PAIN RELIEVING PATCH -L [Suspect]
     Active Substance: MENTHOL\METHYL SALICYLATE
     Dosage: 1 PATCH
     Route: 061
     Dates: start: 201511, end: 201511
  3. SEROQUEL [Concomitant]
     Active Substance: QUETIAPINE FUMARATE

REACTIONS (9)
  - Dysphagia [Unknown]
  - Hypersensitivity [Unknown]
  - Headache [Unknown]
  - Application site warmth [Unknown]
  - Swollen tongue [Unknown]
  - Dyspnoea [Unknown]
  - Blister [Unknown]
  - Eyelid oedema [Unknown]
  - Drug hypersensitivity [None]

NARRATIVE: CASE EVENT DATE: 201511
